FAERS Safety Report 13878669 (Version 2)
Quarter: 2017Q3

REPORT INFORMATION
  Report Type: Spontaneous
  Country: ES (occurrence: ES)
  Receive Date: 20170817
  Receipt Date: 20170918
  Transmission Date: 20171127
  Serious: Yes (Hospitalization)
  Sender: FDA-Public Use
  Company Number: ES-SA-2017SA151234

PATIENT
  Age: 64 Year
  Sex: Male

DRUGS (8)
  1. CETUXIMAB. [Concomitant]
     Active Substance: CETUXIMAB
     Indication: RECTOSIGMOID CANCER STAGE IV
     Route: 065
  2. FLUOROURACIL. [Suspect]
     Active Substance: FLUOROURACIL
     Indication: RECTOSIGMOID CANCER STAGE IV
     Route: 065
  3. BEVACIZUMAB. [Suspect]
     Active Substance: BEVACIZUMAB
     Route: 065
  4. AFLIBERCEPT [Suspect]
     Active Substance: AFLIBERCEPT
     Indication: RECTOSIGMOID CANCER STAGE IV
     Route: 065
  5. CAPECITABINE. [Concomitant]
     Active Substance: CAPECITABINE
     Route: 065
  6. BEVACIZUMAB. [Suspect]
     Active Substance: BEVACIZUMAB
     Route: 065
  7. IRINOTECAN [Suspect]
     Active Substance: IRINOTECAN
     Indication: RECTOSIGMOID CANCER STAGE IV
     Route: 065
  8. FOLINIC ACID [Suspect]
     Active Substance: LEUCOVORIN
     Indication: RECTOSIGMOID CANCER STAGE IV
     Route: 065

REACTIONS (23)
  - Inflammation [Recovering/Resolving]
  - Tachycardia [Recovering/Resolving]
  - Prothrombin level decreased [Recovering/Resolving]
  - Necrotising fasciitis [Recovering/Resolving]
  - Blood lactic acid increased [Recovering/Resolving]
  - Proteus infection [Recovering/Resolving]
  - Pyrexia [Recovering/Resolving]
  - Erythema [Recovering/Resolving]
  - Neutrophilia [Recovering/Resolving]
  - Tenderness [Recovering/Resolving]
  - Leukocytosis [Recovering/Resolving]
  - Induration [Recovering/Resolving]
  - Coagulopathy [Recovering/Resolving]
  - Clostridial infection [Recovering/Resolving]
  - Chills [Recovering/Resolving]
  - Blood creatine phosphokinase increased [Recovering/Resolving]
  - Candida infection [Recovering/Resolving]
  - Hypotension [Recovering/Resolving]
  - Renal failure [Recovering/Resolving]
  - Blood creatinine increased [Recovering/Resolving]
  - Musculoskeletal pain [Recovering/Resolving]
  - C-reactive protein increased [Recovering/Resolving]
  - Klebsiella infection [Recovering/Resolving]
